FAERS Safety Report 17524478 (Version 1)
Quarter: 2020Q1

REPORT INFORMATION
  Report Type: Spontaneous
  Country: GB (occurrence: GB)
  Receive Date: 20200311
  Receipt Date: 20200311
  Transmission Date: 20200409
  Serious: Yes (Hospitalization, Other)
  Sender: FDA-Public Use
  Company Number: GB-AUROBINDO-AUR-APL-2020-011900

PATIENT
  Age: 33 Year
  Sex: Female

DRUGS (2)
  1. ESCITALOPRAM [Suspect]
     Active Substance: ESCITALOPRAM OXALATE
     Indication: PRODUCT USED FOR UNKNOWN INDICATION
     Dosage: 10 MILLIGRAM, ONCE A DAY
     Route: 048
  2. PROPRANOLOL [Concomitant]
     Active Substance: PROPRANOLOL HYDROCHLORIDE
     Indication: PRODUCT USED FOR UNKNOWN INDICATION
     Dosage: 10 MILLIGRAM, AS NECESSARY (THREE TIMES DAILY - PATIENT RARELY TAKES)
     Route: 048

REACTIONS (4)
  - Depression [Recovering/Resolving]
  - Suicidal behaviour [Recovering/Resolving]
  - Intentional overdose [Unknown]
  - Depressed mood [Unknown]

NARRATIVE: CASE EVENT DATE: 20200122
